FAERS Safety Report 16999294 (Version 1)
Quarter: 2019Q4

REPORT INFORMATION
  Report Type: Spontaneous
  Country: JP (occurrence: JP)
  Receive Date: 20191106
  Receipt Date: 20191106
  Transmission Date: 20200122
  Serious: Yes (Other)
  Sender: FDA-Public Use
  Company Number: JP-PFIZER INC-2019468801

PATIENT
  Age: 7 Decade
  Sex: Female

DRUGS (3)
  1. EFFEXOR [Suspect]
     Active Substance: VENLAFAXINE HYDROCHLORIDE
     Dosage: UNK
  2. SULPIRIDE [Concomitant]
     Active Substance: SULPIRIDE
     Dosage: UNK
  3. EFFEXOR [Suspect]
     Active Substance: VENLAFAXINE HYDROCHLORIDE
     Dosage: 75 MG, UNK

REACTIONS (4)
  - Extrapyramidal disorder [Recovering/Resolving]
  - Hepatic function abnormal [Recovering/Resolving]
  - Weight decreased [Recovering/Resolving]
  - Paralysis [Recovering/Resolving]
